FAERS Safety Report 9432552 (Version 15)
Quarter: 2016Q3

REPORT INFORMATION
  Report Type: Report from Study
  Country: CA (occurrence: CA)
  Receive Date: 20130731
  Receipt Date: 20160805
  Transmission Date: 20161109
  Serious: Yes (Hospitalization)
  Sender: FDA-Public Use
  Company Number: PHHY2013CA081665

PATIENT
  Age: 68 Year
  Sex: Female

DRUGS (1)
  1. SANDOSTATIN LAR DEPOT [Suspect]
     Active Substance: OCTREOTIDE ACETATE
     Indication: NEUROENDOCRINE TUMOUR
     Dosage: 30 MG, QMO (EVERY 4 WEEKS)
     Route: 030
     Dates: start: 20130605

REACTIONS (22)
  - Nasal congestion [Recovering/Resolving]
  - Blood pressure decreased [Unknown]
  - Oropharyngeal pain [Recovering/Resolving]
  - Frequent bowel movements [Recovered/Resolved]
  - Wound infection [Unknown]
  - Pyrexia [Recovered/Resolved]
  - Malaise [Recovering/Resolving]
  - Cough [Unknown]
  - Heart rate increased [Unknown]
  - Blood pressure increased [Unknown]
  - Nasopharyngitis [Unknown]
  - Cystitis [Unknown]
  - Needle issue [Unknown]
  - White blood cell count decreased [Unknown]
  - Pharyngitis [Recovering/Resolving]
  - Abdominal discomfort [Unknown]
  - Chills [Recovered/Resolved]
  - Swelling [Recovered/Resolved]
  - Injection site reaction [Recovered/Resolved]
  - Dizziness [Recovered/Resolved]
  - Erythema [Recovered/Resolved]
  - Diarrhoea [Unknown]

NARRATIVE: CASE EVENT DATE: 201308
